FAERS Safety Report 8010213-8 (Version None)
Quarter: 2011Q4

REPORT INFORMATION
  Report Type: 
  Country: None (occurrence: None)
  Receive Date: 20111221
  Receipt Date: 20111214
  Transmission Date: 20120403
  Serious: Yes (Other)
  Sender: FDA-Public Use
  Company Number: 2011SP058270

PATIENT
  Age: 35 Year
  Sex: Female
  Weight: 53 kg

DRUGS (2)
  1. XYLOCAIN WITH ADRENALINE [Concomitant]
  2. NEXPLANON [Suspect]
     Indication: CONTRACEPTION
     Dosage: 68 MG;SBDE
     Dates: start: 20111109, end: 20111115

REACTIONS (4)
  - IMPLANT SITE ERYTHEMA [None]
  - IMPLANT SITE PRURITUS [None]
  - IMPLANT SITE INFLAMMATION [None]
  - IMPLANT SITE DISCHARGE [None]
